FAERS Safety Report 8960295 (Version 1)
Quarter: 2012Q4

REPORT INFORMATION
  Report Type: 
  Country: GB (occurrence: GB)
  Receive Date: 20121211
  Receipt Date: 20121211
  Transmission Date: 20130627
  Serious: Yes (Life-Threatening)
  Sender: FDA-Public Use
  Company Number: GB-PFIZER INC-2008009821JJ

PATIENT
  Age: 34 Year
  Sex: Male

DRUGS (3)
  1. IBUPROFEN [Suspect]
     Indication: BACK PAIN
     Dosage: UNK
     Route: 048
  2. DICLOFENAC SODIUM [Suspect]
     Indication: BACK PAIN
     Dosage: UNK
     Route: 048
  3. PARACETAMOL [Concomitant]
     Indication: BACK PAIN
     Dosage: UNK
     Route: 048

REACTIONS (2)
  - Agranulocytosis [Recovered/Resolved]
  - Sepsis [Recovered/Resolved]
